FAERS Safety Report 24746180 (Version 1)
Quarter: 2024Q4

REPORT INFORMATION
  Report Type: Spontaneous
  Country: IT (occurrence: IT)
  Receive Date: 20241218
  Receipt Date: 20241218
  Transmission Date: 20250114
  Serious: Yes (Other)
  Sender: HIKMA
  Company Number: IT-HIKMA PHARMACEUTICALS-IT-H14001-24-11516

PATIENT
  Age: 44 Year
  Sex: Female
  Weight: 93 kg

DRUGS (2)
  1. CYCLOPHOSPHAMIDE [Suspect]
     Active Substance: CYCLOPHOSPHAMIDE
     Indication: Breast cancer
     Dosage: 1000 MG
     Route: 042
     Dates: start: 20240823, end: 20241028
  2. EPIRUBICIN [Suspect]
     Active Substance: EPIRUBICIN
     Indication: Breast cancer
     Dosage: 160 MG
     Route: 042
     Dates: start: 20240823, end: 20241028

REACTIONS (7)
  - Aphthous ulcer [Recovered/Resolved]
  - Hyperaesthesia [Recovered/Resolved]
  - Neuropathy peripheral [Recovered/Resolved]
  - Cancer fatigue [Recovered/Resolved]
  - Dysgeusia [Recovered/Resolved]
  - Myalgia [Recovered/Resolved]
  - Arthralgia [Recovered/Resolved]

NARRATIVE: CASE EVENT DATE: 20240826
